FAERS Safety Report 25742383 (Version 1)
Quarter: 2025Q3

REPORT INFORMATION
  Report Type: Spontaneous
  Country: US (occurrence: US)
  Receive Date: 20250829
  Receipt Date: 20250829
  Transmission Date: 20251021
  Serious: No
  Sender: CALLIDITAS THERAPEUTICS AB
  Company Number: US-Calliditas-2025CAL02573

PATIENT
  Age: 54 Year
  Sex: Female

DRUGS (15)
  1. TARPEYO [Suspect]
     Active Substance: BUDESONIDE
     Indication: IgA nephropathy
     Dosage: 16MG (4MG CAPSULES) ONCE DAILY
     Route: 048
     Dates: start: 20250813
  2. ALAWAY [Concomitant]
     Active Substance: KETOTIFEN FUMARATE
     Route: 047
  3. FERROUS SULFATE [Concomitant]
     Active Substance: FERROUS SULFATE
  4. FILSPARI [Concomitant]
     Active Substance: SPARSENTAN
  5. FLUOCINONIDE [Concomitant]
     Active Substance: FLUOCINONIDE
  6. HYDROCORTISONE [Concomitant]
     Active Substance: HYDROCORTISONE
  7. JARDIANCE [Concomitant]
     Active Substance: EMPAGLIFLOZIN
  8. METROCREAM [Concomitant]
     Active Substance: METRONIDAZOLE
  9. MULTIVITAMINS WITH MINERALS [UMBRELLA TERM] [Concomitant]
  10. OMEGA-3 FATTY ACIDS [Concomitant]
     Active Substance: OMEGA-3 FATTY ACIDS
  11. SULFACETAMIDE SODIUM\SULFUR [Concomitant]
     Active Substance: SULFACETAMIDE SODIUM\SULFUR
  12. TYLENOL [Concomitant]
     Active Substance: ACETAMINOPHEN
  13. CHOLECALCIFEROL [Concomitant]
     Active Substance: CHOLECALCIFEROL
  14. DICLOFENAC [Concomitant]
     Active Substance: DICLOFENAC
  15. ZYRTEC [Concomitant]
     Active Substance: CETIRIZINE HYDROCHLORIDE

REACTIONS (2)
  - Headache [Recovered/Resolved]
  - Hot flush [Recovering/Resolving]
